FAERS Safety Report 6519747-6 (Version None)
Quarter: 2009Q4

REPORT INFORMATION
  Report Type: 
  Country: None (occurrence: None)
  Receive Date: 20091228
  Receipt Date: 20091215
  Transmission Date: 20100525
  Serious: Yes (Other)
  Sender: FDA-Public Use
  Company Number: US-PFIZER INC-2009249304

PATIENT
  Sex: Male
  Weight: 81.633 kg

DRUGS (3)
  1. GEODON [Suspect]
     Indication: PSYCHOTIC DISORDER
     Dosage: POSSIBLY 10MG
     Dates: start: 20090601, end: 20090101
  2. PAXIL [Suspect]
     Dosage: UNK
     Dates: start: 20090101
  3. KLONOPIN [Concomitant]
     Indication: ANXIETY

REACTIONS (5)
  - ANXIETY [None]
  - ERECTILE DYSFUNCTION [None]
  - PALPITATIONS [None]
  - PSYCHOMOTOR HYPERACTIVITY [None]
  - SUICIDAL IDEATION [None]
